FAERS Safety Report 7082525-6 (Version None)
Quarter: 2010Q4

REPORT INFORMATION
  Report Type: 
  Country: None (occurrence: None)
  Receive Date: 20101026
  Receipt Date: 20101015
  Transmission Date: 20110411
  Serious: Yes (Death, Hospitalization, Other)
  Sender: FDA-Public Use
  Company Number: TPA2010A05414

PATIENT
  Age: 61 Year
  Sex: Male
  Weight: 83.0083 kg

DRUGS (12)
  1. ACTOS [Suspect]
     Indication: TYPE 2 DIABETES MELLITUS
     Dosage: 15 MG, 1 IN 1 D, PER ORAL
     Route: 048
     Dates: end: 20100801
  2. GLYBURIDE [Concomitant]
  3. ATENOLOL [Concomitant]
  4. LISINOPRIL [Concomitant]
  5. HYDRALAZINE HCL [Concomitant]
  6. ISOSORBIDE DINITRATE [Concomitant]
  7. LOVASTATIN [Concomitant]
  8. PLAVIX [Concomitant]
  9. DIGOXIN [Concomitant]
  10. COLACE (DOCUSATE SODIUM) [Concomitant]
  11. PACERON (AMIODARONE HYDROCHLORIDE) [Concomitant]
  12. JANUVIA [Concomitant]

REACTIONS (8)
  - ATRIAL FIBRILLATION [None]
  - BLOOD GLUCOSE DECREASED [None]
  - DIALYSIS [None]
  - FATIGUE [None]
  - MYOCARDIAL INFARCTION [None]
  - PUPIL FIXED [None]
  - RENAL FAILURE [None]
  - RESPIRATORY ARREST [None]
